FAERS Safety Report 11809145 (Version 2)
Quarter: 2015Q4

REPORT INFORMATION
  Report Type: Report from Study
  Country: GE (occurrence: GE)
  Receive Date: 20151207
  Receipt Date: 20151229
  Transmission Date: 20160305
  Serious: Yes (Death, Other)
  Sender: FDA-Public Use
  Company Number: GE-GILEAD-2015-0184941

PATIENT
  Age: 60 Year
  Sex: Female

DRUGS (2)
  1. SOFOSBUVIR [Suspect]
     Active Substance: SOFOSBUVIR
     Indication: CHRONIC HEPATITIS C
     Dosage: 400 MG, UNK
     Route: 048
     Dates: start: 20150601, end: 20151029
  2. RIBAVIRIN. [Concomitant]
     Active Substance: RIBAVIRIN
     Indication: CHRONIC HEPATITIS C
     Dosage: 200 MG, UNK
     Route: 048
     Dates: start: 20150601, end: 20151029

REACTIONS (2)
  - Ascites [Fatal]
  - Encephalopathy [Fatal]
